FAERS Safety Report 25732785 (Version 3)
Quarter: 2025Q4

REPORT INFORMATION
  Report Type: Spontaneous
  Country: JP (occurrence: JP)
  Receive Date: 20250827
  Receipt Date: 20251125
  Transmission Date: 20260117
  Serious: Yes (Life-Threatening, Hospitalization, Other)
  Sender: BRISTOL-MYERS SQUIBB COMPANY
  Company Number: JP-ONO-2025JP015277

PATIENT
  Age: 75 Year
  Sex: Male
  Weight: 41.9 kg

DRUGS (1)
  1. OPDIVO [Suspect]
     Active Substance: NIVOLUMAB
     Indication: Oesophageal carcinoma
     Dosage: UNK?ON  23-JUN-2025, 07-JUL-2025  OPDIVO WAS ADMINISTERED
     Route: 041
     Dates: start: 20250609, end: 20250728

REACTIONS (2)
  - Adrenal insufficiency [Not Recovered/Not Resolved]
  - Pneumonia [Unknown]

NARRATIVE: CASE EVENT DATE: 20250815
